FAERS Safety Report 24955080 (Version 1)
Quarter: 2025Q1

REPORT INFORMATION
  Report Type: Spontaneous
  Country: US (occurrence: None)
  Receive Date: 20250210
  Receipt Date: 20250210
  Transmission Date: 20250409
  Serious: No
  Sender: FDA-CTU
  Company Number: None

PATIENT
  Age: 73 Year
  Sex: Male

DRUGS (9)
  1. ENVARSUS XR [Suspect]
     Active Substance: TACROLIMUS
     Indication: Renal transplant
     Dosage: FREQUENCY : DAILY;?
     Route: 048
     Dates: start: 20241101
  2. MYCOPHENOLIC ACID [Suspect]
     Active Substance: MYCOPHENOLIC ACID
     Indication: Renal transplant
     Dosage: FREQUENCY : TWICE A DAY;?
     Route: 048
  3. AMLODIPINE [Concomitant]
     Active Substance: AMLODIPINE BESYLATE
     Dates: start: 20241101, end: 20241106
  4. OMEPRAZOLE [Concomitant]
     Active Substance: OMEPRAZOLE
     Dates: start: 20241101
  5. PREDNISONE [Concomitant]
     Active Substance: PREDNISONE
     Dates: start: 20241101
  6. sulfamethoxazole/trimethoprim 400-80 mg tablet [Concomitant]
     Dates: start: 20241101, end: 20250129
  7. TAMSULOSIN HYDROCHLORIDE [Concomitant]
     Active Substance: TAMSULOSIN HYDROCHLORIDE
     Dates: start: 20241226, end: 20250114
  8. valganclovir 450 mg tablet [Concomitant]
     Dates: start: 20241101, end: 20250129
  9. vitamin D2 50,000 IU capsule [Concomitant]
     Dates: start: 20241101, end: 20241210

REACTIONS (2)
  - Hypertension [None]
  - Therapy interrupted [None]

NARRATIVE: CASE EVENT DATE: 20250127
